FAERS Safety Report 4331759-X (Version None)
Quarter: 2004Q2

REPORT INFORMATION
  Report Type: 
  Country: None (occurrence: None)
  Receive Date: 20040405
  Receipt Date: 20030604
  Transmission Date: 20050107
  Serious: No
  Sender: FDA-Public Use
  Company Number: US-GLAXOSMITHKLINE-A0411231A

PATIENT
  Age: 68 Year
  Sex: Female

DRUGS (2)
  1. FLOVENT [Suspect]
     Indication: ASTHMA
     Dosage: 2PUFF TWICE PER DAY
     Route: 055
     Dates: start: 20020820, end: 20030506
  2. COMBIVENT [Concomitant]

REACTIONS (3)
  - ANOREXIA [None]
  - APHONIA [None]
  - WEIGHT DECREASED [None]
